FAERS Safety Report 9450458 (Version 2)
Quarter: 2013Q3

REPORT INFORMATION
  Report Type: Spontaneous
  Country: US (occurrence: US)
  Receive Date: 20130809
  Receipt Date: 20130826
  Transmission Date: 20140515
  Serious: Yes (Death)
  Sender: FDA-Public Use
  Company Number: US-FRI-1000047643

PATIENT
  Sex: Male
  Weight: 92.79 kg

DRUGS (2)
  1. LINZESS [Suspect]
     Indication: CONSTIPATION
     Dates: start: 201307, end: 201308
  2. LINZESS [Suspect]
     Indication: ABDOMINAL PAIN

REACTIONS (1)
  - Pulmonary embolism [Fatal]
